FAERS Safety Report 8592679-8 (Version None)
Quarter: 2012Q3

REPORT INFORMATION
  Report Type: 
  Country: None (occurrence: None)
  Receive Date: 20120814
  Receipt Date: 20120601
  Transmission Date: 20120928
  Serious: No
  Sender: FDA-Public Use
  Company Number: US-COVIDIEN/TYCO HEALTHCARE/MALLINCKRODT-T201202474

PATIENT
  Sex: Female
  Weight: 62.132 kg

DRUGS (4)
  1. FENTANYL [Suspect]
     Indication: PAIN
     Dosage: 50 UG/HR, UNK
     Route: 062
     Dates: start: 20110601
  2. RESTORIL                           /00393701/ [Concomitant]
     Indication: INSOMNIA
     Dosage: 30 MG, QD AT TIME OF SLEEP
  3. FENTANYL [Suspect]
     Indication: PAIN
     Dosage: 50 UG/HR, UNK
     Route: 062
     Dates: start: 20030901, end: 20110601
  4. FENTANYL [Suspect]
     Dosage: 75 UG/HR, UNK

REACTIONS (1)
  - HOT FLUSH [None]
